FAERS Safety Report 4471912-8 (Version None)
Quarter: 2004Q4

REPORT INFORMATION
  Report Type: 
  Country: None (occurrence: None)
  Receive Date: 20041012
  Receipt Date: 20040922
  Transmission Date: 20050328
  Serious: Yes (Hospitalization)
  Sender: FDA-Public Use
  Company Number: PHBS2004JP12673

PATIENT
  Age: 58 Year
  Sex: Female

DRUGS (3)
  1. CYCLOSPORINE [Suspect]
     Indication: INTERSTITIAL LUNG DISEASE
     Route: 048
     Dates: start: 20040101, end: 20040101
  2. STEROIDS NOS [Concomitant]
  3. PREDNISOLONE [Concomitant]
     Dosage: 40 MG, UNK

REACTIONS (6)
  - HAEMOLYTIC ANAEMIA [None]
  - PLATELET COUNT DECREASED [None]
  - PNEUMOMEDIASTINUM [None]
  - PYREXIA [None]
  - RED BLOOD CELL ABNORMALITY [None]
  - THROMBOTIC MICROANGIOPATHY [None]
